FAERS Safety Report 13255836 (Version 1)
Quarter: 2017Q1

REPORT INFORMATION
  Report Type: Spontaneous
  Country: US (occurrence: US)
  Receive Date: 20170219
  Receipt Date: 20170219
  Transmission Date: 20170428
  Serious: Yes (Life-Threatening, Hospitalization)
  Sender: FDA-Public Use
  Company Number: None

PATIENT
  Age: 32 Year
  Sex: Male
  Weight: 76.5 kg

DRUGS (6)
  1. COGENTIN [Concomitant]
     Active Substance: BENZTROPINE MESYLATE
  2. GEODON [Concomitant]
     Active Substance: ZIPRASIDONE HYDROCHLORIDE\ZIPRASIDONE MESYLATE
  3. TYLENOL [Concomitant]
     Active Substance: ACETAMINOPHEN
  4. DEPAKOTE [Suspect]
     Active Substance: DIVALPROEX SODIUM
     Indication: BIPOLAR DISORDER
     Route: 048
     Dates: start: 20160401, end: 20170205
  5. BACTRIM DS [Suspect]
     Active Substance: SULFAMETHOXAZOLE\TRIMETHOPRIM
     Indication: CARBUNCLE
     Route: 048
     Dates: start: 20170128, end: 20170205
  6. HALDOL [Concomitant]
     Active Substance: HALOPERIDOL

REACTIONS (9)
  - Rash [None]
  - Renal failure [None]
  - Pyrexia [None]
  - Dialysis [None]
  - Multiple organ dysfunction syndrome [None]
  - Viral infection [None]
  - Confusional state [None]
  - Hypersensitivity [None]
  - Hepatic failure [None]

NARRATIVE: CASE EVENT DATE: 20170207
